FAERS Safety Report 17756558 (Version 1)
Quarter: 2020Q2

REPORT INFORMATION
  Report Type: Spontaneous
  Country: CA (occurrence: CA)
  Receive Date: 20200507
  Receipt Date: 20200507
  Transmission Date: 20200714
  Serious: Yes (Other)
  Sender: FDA-Public Use
  Company Number: CA-HORIZON-VIM-0058-2020

PATIENT
  Age: 60 Year
  Sex: Female

DRUGS (1)
  1. VIMOVO [Suspect]
     Active Substance: ESOMEPRAZOLE MAGNESIUM\NAPROXEN
     Indication: PRODUCT USED FOR UNKNOWN INDICATION
     Dosage: 500/20 1 TAB TWO TIMES A DAY
     Route: 048
     Dates: start: 20190822, end: 20190823

REACTIONS (2)
  - Tinnitus [Recovered/Resolved]
  - Deafness [Recovered/Resolved]
